FAERS Safety Report 6727803-2 (Version None)
Quarter: 2010Q2

REPORT INFORMATION
  Report Type: 
  Country: None (occurrence: None)
  Receive Date: 20100512
  Receipt Date: 20100428
  Transmission Date: 20101027
  Serious: Yes (Hospitalization)
  Sender: FDA-Public Use
  Company Number: DSJ-2010-05010

PATIENT
  Age: 81 Year
  Sex: Female

DRUGS (5)
  1. BENICAR   (OLMESARTAN MEDOXOMIL) (TABLET) [Suspect]
     Indication: HYPERTENSION
     Dosage: 40 MG (40 MG, 1 IN 1 D), PER ORAL; 20 MG (20 MG, 1 IN 1 D), PER ORAL;
     Route: 048
     Dates: start: 20080101, end: 20090801
  2. BENICAR   (OLMESARTAN MEDOXOMIL) (TABLET) [Suspect]
     Indication: HYPERTENSION
     Dosage: 40 MG (40 MG, 1 IN 1 D), PER ORAL; 20 MG (20 MG, 1 IN 1 D), PER ORAL;
     Route: 048
     Dates: start: 20091201
  3. BISOPROLOL FUMARATE [Concomitant]
  4. ATORVASTATIN CALCIUM [Concomitant]
  5. FENOFIBRATE [Concomitant]

REACTIONS (4)
  - ANGINA PECTORIS [None]
  - EMBOLISM [None]
  - INFARCTION [None]
  - MYOCARDIAL ISCHAEMIA [None]
